FAERS Safety Report 8336282-3 (Version None)
Quarter: 2012Q2

REPORT INFORMATION
  Report Type: 
  Country: None (occurrence: None)
  Receive Date: 20120504
  Receipt Date: 20120430
  Transmission Date: 20120825
  Serious: Yes (Hospitalization, Other)
  Sender: FDA-Public Use
  Company Number: US-BAYER-2011-017324

PATIENT
  Age: 32 Year
  Sex: Female
  Weight: 70.295 kg

DRUGS (14)
  1. FLUOXETINE [Concomitant]
     Indication: PREMENSTRUAL SYNDROME
     Dosage: UNK
     Dates: start: 20090101
  2. POLY HISTINE FORTE [Concomitant]
     Indication: SINUSITIS
     Dosage: UNK
     Dates: start: 20090203
  3. BIAXIN XL [Concomitant]
     Dosage: 1, BID
     Route: 048
     Dates: start: 20090402
  4. YAZ [Suspect]
     Indication: ACNE
     Dosage: UNK
     Dates: start: 20090402, end: 20090519
  5. NAPROXEN (ALEVE) [Concomitant]
     Indication: HEADACHE
  6. CEFPROZIL [Concomitant]
     Indication: INFECTION
     Dosage: 500 MG, UNK
     Dates: start: 20090203
  7. NAPROXEN (ALEVE) [Concomitant]
     Indication: NECK PAIN
  8. MOTRIN [Concomitant]
     Dosage: UNK UNK, PRN
     Route: 048
     Dates: start: 20090402
  9. YAZ [Suspect]
     Indication: PREMENSTRUAL SYNDROME
  10. GUAIFENESIN [Concomitant]
     Dosage: 2 EVERY 4 HOURS AS NEEDED
     Route: 048
     Dates: start: 20090402
  11. TYLENOL (CAPLET) [Concomitant]
     Dosage: UNK UNK, PRN
     Route: 048
     Dates: start: 20090402
  12. YAZ [Suspect]
     Indication: CONTRACEPTION
  13. CLARITHROMYCIN [Concomitant]
     Indication: SINUSITIS
     Dosage: 500 MG, UNK
     Dates: start: 20090402
  14. ORTHO TRI-CYCLEN [Concomitant]
     Dosage: UNK
     Dates: start: 20090519

REACTIONS (4)
  - INJURY [None]
  - PULMONARY EMBOLISM [None]
  - DEEP VEIN THROMBOSIS [None]
  - PAIN [None]
